FAERS Safety Report 6894798-0 (Version None)
Quarter: 2010Q3

REPORT INFORMATION
  Report Type: 
  Country: None (occurrence: None)
  Receive Date: 20100728
  Receipt Date: 20100715
  Transmission Date: 20110219
  Serious: Yes (Hospitalization)
  Sender: FDA-Public Use
  Company Number: LEO-2010-00633

PATIENT
  Age: 62 Year
  Sex: Male

DRUGS (10)
  1. INNOHEP [Suspect]
     Indication: DEEP VEIN THROMBOSIS
     Dosage: 1800 IU (1800 IU,1 IN 1 D),SUBCUTANEOUS
     Route: 058
     Dates: start: 20091221, end: 20091222
  2. ENOXAPARIN SODIUM [Suspect]
     Indication: DEEP VEIN THROMBOSIS
     Dosage: 4000 IU (4000 IU,1 IN 1 D),SUBCUTANEOUS
     Route: 058
     Dates: start: 20091208, end: 20091220
  3. NADROPARIN (NADROPARIN) (INJECTION) [Suspect]
     Dosage: 8000 IU (8000 IU,1 IN 1 D),SUBCUTANEOUS
     Route: 058
     Dates: start: 20091220, end: 20091221
  4. ACTISKENAN (MORPHINE SULFATE) (10 MILLIGRAM, CAPSULES) [Concomitant]
  5. DOLIPRANE (PARACETAMOL) (1 GRAM, TABLETS) [Concomitant]
  6. DUPHALAC [Concomitant]
  7. PROFENID (KETOPROFEN) (50 MILLIGRAM, CAPSULES) [Concomitant]
  8. NORMACOL (STERCULIA URENS, RHAMNUS FRANGULA EXTRACT) [Concomitant]
  9. INEXIUM (ESOMEPRAZOLE MAGNESIUM) (20 MILLIGRAM, TABLETS) [Concomitant]
  10. MYOLASTAN (TETRAZEPAM) (50 MILLIGRAM, TABLETS) [Concomitant]

REACTIONS (3)
  - HEPARIN-INDUCED THROMBOCYTOPENIA [None]
  - PULMONARY EMBOLISM [None]
  - THROMBOSIS [None]
